FAERS Safety Report 5936115-6 (Version None)
Quarter: 2008Q4

REPORT INFORMATION
  Report Type: 
  Country: None (occurrence: None)
  Receive Date: 20081030
  Receipt Date: 20081022
  Transmission Date: 20090506
  Serious: Yes (Other)
  Sender: FDA-Public Use
  Company Number: JP-PFIZER INC-2008084295

PATIENT

DRUGS (2)
  1. AZULFIDINE [Suspect]
  2. DRUG, UNSPECIFIED [Concomitant]

REACTIONS (1)
  - INTESTINAL OBSTRUCTION [None]
